FAERS Safety Report 18817341 (Version 1)
Quarter: 2021Q1

REPORT INFORMATION
  Report Type: Other
  Country: US (occurrence: US)
  Receive Date: 20210201
  Receipt Date: 20210201
  Transmission Date: 20210419
  Serious: Yes (Other)
  Sender: FDA-Public Use
  Company Number: US-ROCHE-2757306

PATIENT
  Sex: Male

DRUGS (11)
  1. RITUXAN [Suspect]
     Active Substance: RITUXIMAB
     Indication: ESSENTIAL HYPERTENSION
  2. RITUXAN [Suspect]
     Active Substance: RITUXIMAB
     Indication: CORNEAL DYSTROPHY
  3. RITUXAN [Suspect]
     Active Substance: RITUXIMAB
     Indication: GASTROOESOPHAGEAL REFLUX DISEASE
  4. RITUXAN [Suspect]
     Active Substance: RITUXIMAB
     Indication: CHRONIC KIDNEY DISEASE
  5. RITUXAN [Suspect]
     Active Substance: RITUXIMAB
     Indication: GOUT
  6. RITUXAN [Suspect]
     Active Substance: RITUXIMAB
     Indication: DIVERTICULITIS
  7. RITUXAN [Suspect]
     Active Substance: RITUXIMAB
     Indication: SCLERITIS
  8. RITUXAN [Suspect]
     Active Substance: RITUXIMAB
     Indication: OSTEOARTHRITIS
     Route: 042
  9. RITUXAN [Suspect]
     Active Substance: RITUXIMAB
     Indication: BODY MASS INDEX
  10. RITUXAN [Suspect]
     Active Substance: RITUXIMAB
     Indication: HYPERLIPIDAEMIA
  11. RITUXAN [Suspect]
     Active Substance: RITUXIMAB
     Indication: MONOCLONAL GAMMOPATHY

REACTIONS (1)
  - Granulomatosis with polyangiitis [Unknown]
